FAERS Safety Report 24117312 (Version 1)
Quarter: 2024Q3

REPORT INFORMATION
  Report Type: Spontaneous
  Country: CA (occurrence: CA)
  Receive Date: 20240722
  Receipt Date: 20240722
  Transmission Date: 20241017
  Serious: Yes (Life-Threatening, Other)
  Sender: BRISTOL MYERS SQUIBB
  Company Number: CA-BRISTOL-MYERS SQUIBB COMPANY-2024-114777

PATIENT
  Age: 78 Year
  Sex: Female
  Weight: 41 kg

DRUGS (5)
  1. ELIQUIS [Suspect]
     Active Substance: APIXABAN
     Indication: Pulmonary embolism
     Dosage: FOR 7 DAYS
     Route: 048
  2. ELIQUIS [Suspect]
     Active Substance: APIXABAN
     Route: 048
  3. ASPIRIN [Suspect]
     Active Substance: ASPIRIN
     Indication: Product used for unknown indication
  4. DEXILANT [Concomitant]
     Active Substance: DEXLANSOPRAZOLE
     Indication: Product used for unknown indication
     Dosage: CAPSULE, DELAYED RELEASE
  5. PREDNISONE [Concomitant]
     Active Substance: PREDNISONE
     Indication: Product used for unknown indication

REACTIONS (6)
  - Gastrointestinal vascular malformation haemorrhagic [Recovering/Resolving]
  - Hypotension [Recovering/Resolving]
  - Adverse event [Unknown]
  - Lactic acidosis [Recovering/Resolving]
  - Shock haemorrhagic [Recovering/Resolving]
  - Upper gastrointestinal haemorrhage [Recovering/Resolving]
